FAERS Safety Report 13775977 (Version 1)
Quarter: 2017Q3

REPORT INFORMATION
  Report Type: Spontaneous
  Country: BR (occurrence: BR)
  Receive Date: 20170721
  Receipt Date: 20170721
  Transmission Date: 20171127
  Serious: Yes (Hospitalization, Other)
  Sender: FDA-Public Use
  Company Number: BR-ARALEZ PHARMACEUTICALS R+D INC.-ARA-TP-BR-2017-791

PATIENT
  Sex: Male

DRUGS (3)
  1. METOPROLOL SUCCINATE. [Suspect]
     Active Substance: METOPROLOL SUCCINATE
     Dosage: DIVIDE THE DOSE INTO QUARTERS AND ADMINISTERED IT IN DIFFERENT PERIODS OF THE DAY
     Route: 048
  2. METOPROLOL SUCCINATE. [Suspect]
     Active Substance: METOPROLOL SUCCINATE
     Dosage: EVERY MORNING
     Route: 048
     Dates: start: 2016
  3. METOPROLOL SUCCINATE. [Suspect]
     Active Substance: METOPROLOL SUCCINATE
     Indication: INFARCTION
     Dosage: AT NIGHT
     Route: 048
     Dates: start: 2011

REACTIONS (5)
  - Blood pressure inadequately controlled [Not Recovered/Not Resolved]
  - Off label use [Not Recovered/Not Resolved]
  - Heart rate irregular [Not Recovered/Not Resolved]
  - Intentional product misuse [Unknown]
  - Chronic inflammatory demyelinating polyradiculoneuropathy [Unknown]

NARRATIVE: CASE EVENT DATE: 2016
